FAERS Safety Report 9412006 (Version 1)
Quarter: 2013Q3

REPORT INFORMATION
  Report Type: Spontaneous
  Country: US (occurrence: US)
  Receive Date: 20130722
  Receipt Date: 20130722
  Transmission Date: 20140515
  Serious: No
  Sender: FDA-Public Use
  Company Number: US-BAYER-2013-088244

PATIENT
  Age: 70 Year
  Sex: Female
  Weight: 76.64 kg

DRUGS (5)
  1. ALEVE CAPLET [Suspect]
     Dosage: 2 DF, QD
     Route: 048
     Dates: start: 2012
  2. OMEPRAZOLE [Concomitant]
  3. ALENDRONATE SODIUM [Concomitant]
     Dosage: 70 MG, OW
  4. LATANOPROST [Concomitant]
  5. CLONAZEPAM [Concomitant]

REACTIONS (2)
  - Constipation [Not Recovered/Not Resolved]
  - Incorrect drug administration duration [None]
